FAERS Safety Report 5872434-X (Version None)
Quarter: 2008Q3

REPORT INFORMATION
  Report Type: 
  Country: None (occurrence: None)
  Receive Date: 20080902
  Receipt Date: 20080819
  Transmission Date: 20090109
  Serious: Yes (Hospitalization)
  Sender: FDA-Public Use
  Company Number: 2008BI009152

PATIENT
  Age: 37 Year
  Sex: Male

DRUGS (3)
  1. ZEVALIN [Suspect]
     Indication: B-CELL UNCLASSIFIABLE LYMPHOMA HIGH GRADE
     Dosage: 960 MBQ; 1X; IV
     Route: 042
     Dates: start: 20080124, end: 20080124
  2. RITUXIMAB [Concomitant]
  3. RITUXIMAB [Concomitant]

REACTIONS (6)
  - ABDOMINAL PAIN [None]
  - DEHYDRATION [None]
  - MALNUTRITION [None]
  - NAUSEA [None]
  - RENAL FAILURE ACUTE [None]
  - VOMITING [None]
